FAERS Safety Report 9176865 (Version 1)
Quarter: 2013Q1

REPORT INFORMATION
  Report Type: Spontaneous
  Country: BE (occurrence: BE)
  Receive Date: 20130321
  Receipt Date: 20130321
  Transmission Date: 20140127
  Serious: Yes (Other)
  Sender: FDA-Public Use
  Company Number: PHHY2013BE026456

PATIENT
  Age: 56 Year
  Sex: Female
  Weight: 73 kg

DRUGS (10)
  1. ZOMETA [Suspect]
     Indication: METASTASES TO BONE
     Dosage: 4 MG, ONCE EVERY 4 WEEKS
     Dates: start: 201108, end: 201208
  2. EMCONCOR [Concomitant]
     Dosage: 5 MG, DAILY
     Route: 048
  3. L-THYROXINE [Concomitant]
     Dosage: 100 UG, DAILY
     Route: 048
  4. CARDIO ASPIRIN [Concomitant]
     Dosage: UNK UKN, DAILY
     Route: 048
  5. ZOLPIDEM [Concomitant]
     Dosage: UNK UKN, DAILY
     Route: 048
  6. FOLIC ACID [Concomitant]
     Dosage: UNK UKN, UNK
  7. FLUOROURACIL [Concomitant]
     Dosage: UNK UKN, UNK
  8. IRINOTECAN [Concomitant]
     Dosage: UNK UKN, UNK
  9. AVASTIN [Concomitant]
     Dosage: UNK UKN, UNK
  10. VALIUM [Concomitant]
     Dosage: UNK UKN, UNK

REACTIONS (2)
  - Osteonecrosis of jaw [Recovered/Resolved]
  - Abscess [Recovered/Resolved]
